FAERS Safety Report 7409148-0 (Version None)
Quarter: 2011Q2

REPORT INFORMATION
  Report Type: 
  Country: None (occurrence: None)
  Receive Date: 20110412
  Receipt Date: 20110404
  Transmission Date: 20111010
  Serious: Yes (Other)
  Sender: FDA-Public Use
  Company Number: IE-ROCHE-769610

PATIENT

DRUGS (1)
  1. LARIAM [Suspect]
     Route: 065

REACTIONS (7)
  - PARANOIA [None]
  - HALLUCINATION [None]
  - DEPRESSION [None]
  - SUICIDE ATTEMPT [None]
  - SUICIDAL IDEATION [None]
  - PSYCHOTIC DISORDER [None]
  - ANXIETY [None]
